FAERS Safety Report 7511464-9 (Version None)
Quarter: 2011Q2

REPORT INFORMATION
  Report Type: 
  Country: None (occurrence: None)
  Receive Date: 20110519
  Receipt Date: 20110513
  Transmission Date: 20111010
  Serious: Yes (Hospitalization)
  Sender: FDA-Public Use
  Company Number: ACY-11-05

PATIENT
  Age: 30 Year
  Sex: Female

DRUGS (2)
  1. ACYCLOVIR [Suspect]
     Indication: MENINGITIS ASEPTIC
     Dosage: 15MG/KG 8 HOURS, IV
     Route: 042
  2. SIBUTRAMINE HYDROCHLORIDE MONOHYDRATE [Concomitant]

REACTIONS (2)
  - CRYSTALLURIA [None]
  - RENAL FAILURE ACUTE [None]
